FAERS Safety Report 24896617 (Version 1)
Quarter: 2025Q1

REPORT INFORMATION
  Report Type: Spontaneous
  Country: US (occurrence: US)
  Receive Date: 20250128
  Receipt Date: 20250128
  Transmission Date: 20250409
  Serious: No
  Sender: SANOFI AVENTIS
  Company Number: US-SA-2025SA025311

PATIENT
  Age: 34 Year
  Sex: Female
  Weight: 75 kg

DRUGS (5)
  1. DUPIXENT [Suspect]
     Active Substance: DUPILUMAB
     Indication: Dermatitis atopic
     Dosage: 300 MG, QOW
     Route: 058
     Dates: start: 20220619
  2. BETAMETHASONE DIPROPIONATE AUGMENTED [Concomitant]
     Active Substance: BETAMETHASONE DIPROPIONATE
  3. EPIPEN [Concomitant]
     Active Substance: EPINEPHRINE
  4. TACROLIMUS [Concomitant]
     Active Substance: TACROLIMUS
  5. HYALURONIC ACID [Concomitant]
     Active Substance: HYALURONIC ACID

REACTIONS (1)
  - Arthralgia [Recovering/Resolving]
